FAERS Safety Report 9997926 (Version 3)
Quarter: 2014Q2

REPORT INFORMATION
  Report Type: Spontaneous
  Country: US (occurrence: US)
  Receive Date: 20140311
  Receipt Date: 20140430
  Transmission Date: 20141212
  Serious: Yes (Other)
  Sender: FDA-Public Use
  Company Number: US-PFIZER INC-2014067479

PATIENT
  Sex: Female

DRUGS (2)
  1. ADVIL [Suspect]
     Indication: PAIN
     Dosage: 8 PILLS DAILY
  2. ASPIRIN [Suspect]
     Dosage: 1 MG, 1X/DAY

REACTIONS (4)
  - Incorrect dosage administered [Unknown]
  - Drug prescribing error [Unknown]
  - Haematochezia [Unknown]
  - Drug ineffective [Unknown]
